FAERS Safety Report 7656280-2 (Version None)
Quarter: 2011Q3

REPORT INFORMATION
  Report Type: 
  Country: None (occurrence: None)
  Receive Date: 20110804
  Receipt Date: 20110728
  Transmission Date: 20111222
  Serious: Yes (Hospitalization)
  Sender: FDA-Public Use
  Company Number: FR-MPIJNJ-2011-02455

PATIENT

DRUGS (6)
  1. ZELITREX                           /01269701/ [Concomitant]
     Dosage: 1000 MG, UNK
     Route: 048
  2. DEXAMETHASONE [Suspect]
     Indication: MULTIPLE MYELOMA
     Dosage: 20 MG, UNK
     Route: 048
     Dates: start: 20110330, end: 20110410
  3. OXYCONTIN [Concomitant]
     Indication: BONE PAIN
     Dosage: 40 MG, UNK
     Route: 048
  4. VELCADE [Suspect]
     Indication: MULTIPLE MYELOMA
     Dosage: 1.9 MG, UNK
     Route: 042
     Dates: start: 20110330, end: 20110410
  5. BENDAMUSTINE [Suspect]
     Indication: MULTIPLE MYELOMA
     Dosage: 102.5 MG, UNK
     Route: 042
     Dates: start: 20110330, end: 20110331
  6. INNOHEP [Concomitant]
     Dosage: 10000 UNK, UNK
     Route: 058

REACTIONS (1)
  - VISUAL IMPAIRMENT [None]
